FAERS Safety Report 5751047-4 (Version None)
Quarter: 2008Q2

REPORT INFORMATION
  Report Type: 
  Country: None (occurrence: None)
  Receive Date: 20080528
  Receipt Date: 20080521
  Transmission Date: 20081010
  Serious: Yes (Hospitalization)
  Sender: FDA-Public Use
  Company Number: TW-AVENTIS-200813868GDDC

PATIENT
  Age: 45 Year
  Sex: Female

DRUGS (1)
  1. TAXOTERE [Suspect]
     Route: 042
     Dates: start: 20080403, end: 20080403

REACTIONS (1)
  - FEBRILE INFECTION [None]
